FAERS Safety Report 18019652 (Version 1)
Quarter: 2020Q3

REPORT INFORMATION
  Report Type: Spontaneous
  Country: LT (occurrence: LT)
  Receive Date: 20200714
  Receipt Date: 20200714
  Transmission Date: 20201103
  Serious: Yes (Hospitalization)
  Sender: FDA-Public Use
  Company Number: LT-BAUSCH-BL-2020-019138

PATIENT
  Age: 40 Year
  Sex: Female
  Weight: 90 kg

DRUGS (4)
  1. FLUVOXAMINE [Suspect]
     Active Substance: FLUVOXAMINE
     Indication: SUICIDE ATTEMPT
     Dosage: UNKNOWN (INTENTIONAL OVERDOSE)
     Route: 048
     Dates: start: 20200523, end: 20200523
  2. QUETIAPINE. [Suspect]
     Active Substance: QUETIAPINE
     Indication: SUICIDE ATTEMPT
     Dosage: UNKNOWN (INTENTIONAL OVERDOSE)
     Route: 048
     Dates: start: 20200523, end: 20200523
  3. VENLAXIN [Suspect]
     Active Substance: VENLAFAXINE HYDROCHLORIDE
     Indication: SUICIDE ATTEMPT
     Dosage: UNKNOWN (INTENTIONAL OVERDOSE)
     Route: 048
     Dates: start: 20200523, end: 20200523
  4. DIAZEPAM. [Suspect]
     Active Substance: DIAZEPAM
     Indication: SUICIDE ATTEMPT
     Dosage: UNKNOWN (INTENTIONAL OVERDOSE)
     Route: 048
     Dates: start: 20200523, end: 20200523

REACTIONS (7)
  - Blood pressure abnormal [Recovered/Resolved]
  - Sopor [Recovered/Resolved]
  - Off label use [Recovered/Resolved]
  - Intentional overdose [Recovered/Resolved]
  - Heart rate increased [Recovered/Resolved]
  - Breath sounds abnormal [Recovered/Resolved]
  - Respiratory rate decreased [Recovered/Resolved]

NARRATIVE: CASE EVENT DATE: 20200523
